FAERS Safety Report 23205851 (Version 5)
Quarter: 2025Q3

REPORT INFORMATION
  Report Type: Spontaneous
  Country: EU (occurrence: EU)
  Receive Date: 20231120
  Receipt Date: 20250809
  Transmission Date: 20251020
  Serious: Yes (Life-Threatening, Hospitalization, Other)
  Sender: ALEXION PHARMACEUTICALS
  Company Number: 2023A262604

PATIENT
  Age: 68 Year
  Sex: Male
  Weight: 72 kg

DRUGS (6)
  1. IMFINZI [Suspect]
     Active Substance: DURVALUMAB
     Indication: Hepatocellular carcinoma
     Dosage: 1500 MILLIGRAM, QD
     Dates: start: 20230919, end: 20230919
  2. IMJUDO [Suspect]
     Active Substance: TREMELIMUMAB\TREMELIMUMAB-ACTL
     Indication: Hepatocellular carcinoma
     Dosage: 300 MILLIGRAM, QD
     Dates: start: 20230919, end: 20230919
  3. INFLIXIMAB [Suspect]
     Active Substance: INFLIXIMAB
     Indication: Autoimmune colitis
     Dosage: 300 MILLIGRAM, QD
     Dates: start: 20231031, end: 20231031
  4. METHYLPREDNISOLONE [Suspect]
     Active Substance: METHYLPREDNISOLONE
     Indication: Autoimmune colitis
     Dosage: 60 MILLIGRAM, QD
     Dates: start: 20231019, end: 20231024
  5. METHYLPREDNISOLONE [Suspect]
     Active Substance: METHYLPREDNISOLONE
     Dosage: 120 MILLIGRAM, QD
     Dates: start: 20231024, end: 20231031
  6. METHYLPREDNISOLONE [Suspect]
     Active Substance: METHYLPREDNISOLONE
     Dosage: 180 MILLIGRAM, QD
     Dates: start: 20231019, end: 20231031

REACTIONS (11)
  - Infection [Unknown]
  - Large intestine perforation [Recovered/Resolved]
  - Autoimmune colitis [Unknown]
  - Diarrhoea [Unknown]
  - Rectal haemorrhage [Unknown]
  - Peritonitis [Unknown]
  - Septic shock [Unknown]
  - Acute kidney injury [Unknown]
  - Coagulopathy [Unknown]
  - Hepatic failure [Unknown]
  - Hepatic cytolysis [Unknown]

NARRATIVE: CASE EVENT DATE: 20231102
